FAERS Safety Report 21885046 (Version 1)
Quarter: 2023Q1

REPORT INFORMATION
  Report Type: Spontaneous
  Country: FR (occurrence: FR)
  Receive Date: 20230119
  Receipt Date: 20230119
  Transmission Date: 20230417
  Serious: Yes (Other)
  Sender: FDA-Public Use
  Company Number: None

PATIENT
  Age: 60 Year
  Sex: Female
  Weight: 115 kg

DRUGS (3)
  1. TRAZIMERA [Suspect]
     Active Substance: TRASTUZUMAB-QYYP
     Indication: Breast cancer
     Dosage: 690 MG, CYCLIC
     Route: 042
     Dates: start: 20220705, end: 20220726
  2. XELODA [Suspect]
     Active Substance: CAPECITABINE
     Indication: Breast cancer
     Dosage: 1500 MG, 2X/DAY
     Route: 048
     Dates: start: 20220705, end: 20220723
  3. TUKYSA [Suspect]
     Active Substance: TUCATINIB
     Indication: Breast cancer
     Dosage: 600 MG, 1X/DAY
     Route: 048
     Dates: start: 20220719, end: 20220723

REACTIONS (3)
  - Gastrointestinal disorder [Recovering/Resolving]
  - Cholestasis [Recovering/Resolving]
  - Hepatic cytolysis [Recovering/Resolving]

NARRATIVE: CASE EVENT DATE: 20220719
